FAERS Safety Report 9782422 (Version 1)
Quarter: 2013Q4

REPORT INFORMATION
  Report Type: Spontaneous
  Country: FR (occurrence: FR)
  Receive Date: 20131226
  Receipt Date: 20131226
  Transmission Date: 20140711
  Serious: Yes (Hospitalization)
  Sender: FDA-Public Use
  Company Number: FR-JNJFOC-20131212048

PATIENT
  Age: 35 Year
  Sex: Male
  Weight: 64 kg

DRUGS (3)
  1. RISPERDAL [Suspect]
     Indication: FRONTOTEMPORAL DEMENTIA
     Route: 048
     Dates: end: 20131203
  2. RISPERDAL [Suspect]
     Indication: FRONTOTEMPORAL DEMENTIA
     Route: 048
     Dates: start: 20130626
  3. LEVOTHYROXINE SODIUM [Concomitant]
     Route: 065
     Dates: start: 20130626

REACTIONS (2)
  - Ileus paralytic [Recovered/Resolved]
  - Off label use [Unknown]
